FAERS Safety Report 10034303 (Version 2)
Quarter: 2014Q2

REPORT INFORMATION
  Report Type: Spontaneous
  Country: US (occurrence: None)
  Receive Date: 20140321
  Receipt Date: 20140429
  Transmission Date: 20141212
  Serious: Yes (Other)
  Sender: FDA-Public Use
  Company Number: C14 010 AE

PATIENT
  Age: 2 Year
  Sex: 0

DRUGS (1)
  1. FIRST LANSOPRAZOLE RX [Suspect]
     Indication: GASTROOESOPHAGEAL REFLUX DISEASE
     Route: 048
     Dates: start: 201310

REACTIONS (2)
  - Vomiting [None]
  - Liquid product physical issue [None]
